FAERS Safety Report 22132072 (Version 3)
Quarter: 2023Q2

REPORT INFORMATION
  Report Type: Report from Study
  Country: US (occurrence: None)
  Receive Date: 20230323
  Receipt Date: 20230510
  Transmission Date: 20230721
  Serious: Yes (Other)
  Sender: FDA-Public Use
  Company Number: US-ROCHE-3284165

PATIENT
  Age: 82 Year
  Sex: Female
  Weight: 89 kg

DRUGS (28)
  1. RANIBIZUMAB [Suspect]
     Active Substance: RANIBIZUMAB
     Indication: Diabetic retinal oedema
     Dosage: DOSE OF STUDY DRUG FIRST ADMINISTERED 10 MG/ML?INTERVAL EVERY 24-WEEKS, DOSE LAST STUDY DRUG ADMIN P
     Route: 050
     Dates: start: 20200630
  2. RANIBIZUMAB [Suspect]
     Active Substance: RANIBIZUMAB
  3. RANIBIZUMAB [Suspect]
     Active Substance: RANIBIZUMAB
  4. RANIBIZUMAB [Suspect]
     Active Substance: RANIBIZUMAB
  5. RANIBIZUMAB [Suspect]
     Active Substance: RANIBIZUMAB
  6. RANIBIZUMAB [Suspect]
     Active Substance: RANIBIZUMAB
  7. LEVOTHYROXINE [Concomitant]
     Active Substance: LEVOTHYROXINE
     Indication: Hypothyroidism
     Dosage: 125 MG/ML
     Route: 048
     Dates: start: 20011210
  8. OLMESARTAN [Concomitant]
     Active Substance: OLMESARTAN
     Indication: Hypertension
     Dosage: 40 MG/ML
     Route: 048
     Dates: start: 2017
  9. EQUATE ANTIBIOTIC + PAIN RELIEF [Concomitant]
     Indication: Lichen sclerosus
     Route: 067
     Dates: start: 2002
  10. COCONUT OIL [Concomitant]
     Active Substance: COCONUT OIL
     Indication: Lichen sclerosus
     Route: 067
     Dates: start: 2002
  11. ZINC OXIDE [Concomitant]
     Active Substance: ZINC OXIDE
     Indication: Lichen sclerosus
     Route: 067
     Dates: start: 2002
  12. EQUATE ANTI ITCH [Concomitant]
     Active Substance: DIPHENHYDRAMINE HYDROCHLORIDE\ZINC ACETATE
     Indication: Lichen sclerosus
     Route: 067
     Dates: start: 2002
  13. TRIPLE PASTE [Concomitant]
     Indication: Lichen sclerosus
     Route: 067
     Dates: start: 2002
  14. NYSTATIN [Concomitant]
     Active Substance: NYSTATIN
     Indication: Lichen sclerosus
     Route: 067
     Dates: start: 2002
  15. TRIAMCINOLONE ACETONIDE [Concomitant]
     Active Substance: TRIAMCINOLONE ACETONIDE
     Indication: Lichen sclerosus
     Route: 067
     Dates: start: 2002
  16. ZINC [Concomitant]
     Active Substance: ZINC
     Route: 048
     Dates: start: 20201001
  17. VITAMIN D3 [Concomitant]
     Active Substance: CHOLECALCIFEROL
     Indication: Vitamin D deficiency
     Route: 048
     Dates: start: 20201001
  18. VITAMIN C [Concomitant]
     Active Substance: ASCORBIC ACID
     Route: 048
     Dates: start: 20210201
  19. FUROSEMIDE [Concomitant]
     Active Substance: FUROSEMIDE
     Indication: Oedema peripheral
     Dosage: 40 MG/ML
     Route: 048
     Dates: start: 20210519
  20. OZEMPIC [Concomitant]
     Active Substance: SEMAGLUTIDE
     Dates: start: 202106
  21. ASPIRIN [Concomitant]
     Active Substance: ASPIRIN
     Route: 048
     Dates: start: 20210924
  22. OZEMPIC [Concomitant]
     Active Substance: SEMAGLUTIDE
     Indication: Type 2 diabetes mellitus
     Dosage: 0.50 MG/ML
     Route: 030
     Dates: start: 20220919
  23. METFORMIN [Concomitant]
     Active Substance: METFORMIN HYDROCHLORIDE
     Indication: Type 2 diabetes mellitus
     Dosage: 500 MG/ML
     Route: 048
     Dates: start: 20220919
  24. MUPIROCIN [Concomitant]
     Active Substance: MUPIROCIN
     Indication: Lichen sclerosus
     Dosage: 1 OTHER
     Route: 067
     Dates: start: 2020
  25. PLAVIX [Concomitant]
     Active Substance: CLOPIDOGREL BISULFATE
     Indication: Deep vein thrombosis
     Dosage: 75 OTHER
     Route: 048
     Dates: start: 20230216
  26. PREDNISOLONE [Concomitant]
     Active Substance: PREDNISOLONE
     Indication: Prophylaxis
     Route: 047
     Dates: start: 20230224, end: 20230330
  27. NEOMYCIN [Concomitant]
     Active Substance: NEOMYCIN
     Indication: Infection prophylaxis
     Dosage: 0.5 OTHER
     Route: 047
     Dates: start: 20230224, end: 20230330
  28. MOXIFLOXACIN [Concomitant]
     Active Substance: MOXIFLOXACIN
     Indication: Infection prophylaxis
     Route: 047
     Dates: start: 20230224, end: 20230224

REACTIONS (1)
  - Conjunctival retraction [Recovered/Resolved]

NARRATIVE: CASE EVENT DATE: 20230209
